FAERS Safety Report 5866015-1 (Version None)
Quarter: 2008Q3

REPORT INFORMATION
  Report Type: 
  Country: None (occurrence: None)
  Receive Date: 20080829
  Receipt Date: 20080819
  Transmission Date: 20090109
  Serious: Yes (Other)
  Sender: FDA-Public Use
  Company Number: US-PFIZER INC-2008063419

PATIENT
  Sex: Female
  Weight: 71.7 kg

DRUGS (16)
  1. LIPITOR [Suspect]
     Indication: BLOOD CHOLESTEROL INCREASED
     Dates: start: 20080723, end: 20080805
  2. SPIRIVA [Suspect]
     Indication: DYSPNOEA
     Dates: start: 20070801, end: 20080815
  3. LISINOPRIL [Suspect]
  4. ALL OTHER THERAPEUTIC PRODUCTS [Concomitant]
  5. ACETYLSALICYLIC ACID SRT [Concomitant]
  6. ANTACID TAB [Concomitant]
  7. METFORMIN HCL [Concomitant]
  8. LINSEED OIL [Concomitant]
  9. CINNAMON [Concomitant]
  10. FISH OIL [Concomitant]
  11. GARLIC [Concomitant]
  12. MULTI-VITAMINS [Concomitant]
  13. CARTIA XT [Concomitant]
  14. ATENOLOL [Concomitant]
  15. PEPCID [Concomitant]
  16. FLAXSEED OIL [Concomitant]

REACTIONS (14)
  - ATAXIA [None]
  - DYSPHONIA [None]
  - DYSPNOEA [None]
  - ERYTHEMA [None]
  - GAIT DISTURBANCE [None]
  - IMPAIRED DRIVING ABILITY [None]
  - MUSCULOSKELETAL STIFFNESS [None]
  - OCULAR HYPERAEMIA [None]
  - OEDEMA [None]
  - OEDEMA PERIPHERAL [None]
  - RASH [None]
  - SPEECH DISORDER [None]
  - URTICARIA [None]
  - WEIGHT DECREASED [None]
